FAERS Safety Report 7990230-4 (Version None)
Quarter: 2011Q4

REPORT INFORMATION
  Report Type: 
  Country: None (occurrence: None)
  Receive Date: 20111219
  Receipt Date: 20111207
  Transmission Date: 20120403
  Serious: Yes (Death, Other)
  Sender: FDA-Public Use
  Company Number: JP-MILLENNIUM PHARMACEUTICALS, INC.-2011-06285

PATIENT

DRUGS (2)
  1. VELCADE [Suspect]
     Indication: PLASMACYTOMA
     Route: 042
  2. DEXAMETHASONE [Concomitant]

REACTIONS (2)
  - INTERSTITIAL LUNG DISEASE [None]
  - DEATH [None]
